FAERS Safety Report 6747495-6 (Version None)
Quarter: 2010Q2

REPORT INFORMATION
  Report Type: 
  Country: None (occurrence: None)
  Receive Date: 20100528
  Receipt Date: 20100521
  Transmission Date: 20101027
  Serious: Yes (Other)
  Sender: FDA-Public Use
  Company Number: US-MERCK-1005USA04177

PATIENT
  Age: 55 Year
  Sex: Male

DRUGS (1)
  1. SINGULAIR [Suspect]
     Indication: NASAL POLYPS
     Route: 048
     Dates: start: 20070202

REACTIONS (7)
  - ADVERSE EVENT [None]
  - APATHY [None]
  - DECREASED APPETITE [None]
  - DEPRESSION [None]
  - FATIGUE [None]
  - SOMNOLENCE [None]
  - SUICIDAL IDEATION [None]
